FAERS Safety Report 11117617 (Version 1)
Quarter: 2015Q2

REPORT INFORMATION
  Report Type: Spontaneous
  Country: US (occurrence: US)
  Receive Date: 20150517
  Receipt Date: 20150517
  Transmission Date: 20150821
  Serious: No
  Sender: FDA-Public Use
  Company Number: US-ASTRAZENECA-2015SE43112

PATIENT
  Age: 24502 Day
  Sex: Female
  Weight: 45.4 kg

DRUGS (5)
  1. NEXIUM [Suspect]
     Active Substance: ESOMEPRAZOLE MAGNESIUM
     Indication: GASTROOESOPHAGEAL REFLUX DISEASE
     Route: 048
     Dates: start: 2008
  2. NEXIUM [Suspect]
     Active Substance: ESOMEPRAZOLE MAGNESIUM
     Indication: IMPAIRED GASTRIC EMPTYING
     Route: 048
     Dates: start: 2008
  3. MAGNESIUM [Concomitant]
     Active Substance: MAGNESIUM
     Indication: SUPPLEMENTATION THERAPY
  4. VITAMIN B12 [Concomitant]
     Active Substance: CYANOCOBALAMIN
  5. XANAX [Concomitant]
     Active Substance: ALPRAZOLAM
     Indication: MENTAL DISORDER

REACTIONS (13)
  - Feeling jittery [Unknown]
  - Nervousness [Unknown]
  - Malaise [Unknown]
  - Tremor [Unknown]
  - Activities of daily living impaired [Unknown]
  - Myalgia [Unknown]
  - Dry mouth [Unknown]
  - Dysphonia [Unknown]
  - Heart rate increased [Unknown]
  - Dizziness [Unknown]
  - Steatorrhoea [Unknown]
  - Abdominal pain [Unknown]
  - Diarrhoea [Unknown]

NARRATIVE: CASE EVENT DATE: 201412
